FAERS Safety Report 10067812 (Version 5)
Quarter: 2014Q3

REPORT INFORMATION
  Report Type: Report from Study
  Country: US (occurrence: US)
  Receive Date: 20140409
  Receipt Date: 20140731
  Transmission Date: 20150326
  Serious: Yes (Other)
  Sender: FDA-Public Use
  Company Number: US-B.I. PHARMACEUTICALS,INC./RIDGEFIELD-2014-BI-14147BI

PATIENT
  Age: 71 Year
  Sex: Female
  Weight: 61 kg

DRUGS (8)
  1. CARVEDILOL. [Concomitant]
     Active Substance: CARVEDILOL
     Indication: HYPERTENSION
     Dosage: 50 MG
     Route: 048
     Dates: start: 1990
  2. LISINOPRIL. [Concomitant]
     Active Substance: LISINOPRIL
     Indication: HYPERTENSION
     Dosage: 40 MG
     Route: 048
     Dates: start: 2010
  3. BI 1744+TIOTROPIUM BROMIDE [Suspect]
     Active Substance: OLODATEROL\TIOTROPIUM BROMIDE
     Indication: CHRONIC OBSTRUCTIVE PULMONARY DISEASE
     Dosage: DOSE PER APPLICATION: 2.5/5 UG PUFF, FORMULATION: PUFF
     Route: 055
     Dates: start: 20140217, end: 20140322
  4. PREDNISONE TAPER [Suspect]
     Active Substance: PREDNISONE
     Indication: RASH
     Dosage: 20 MG
     Route: 048
     Dates: start: 20140311, end: 20140319
  5. WARFARIN [Concomitant]
     Active Substance: WARFARIN
     Indication: CORONARY ARTERY DISEASE
     Dosage: 5 MG
     Route: 048
     Dates: start: 201310
  6. DEPO-MEDROL [Suspect]
     Active Substance: METHYLPREDNISOLONE ACETATE
     Indication: RASH
     Dosage: 40 MG
     Route: 030
     Dates: start: 20140310, end: 20140310
  7. OMEPRAZOLE. [Concomitant]
     Active Substance: OMEPRAZOLE
     Indication: GASTROOESOPHAGEAL REFLUX DISEASE
     Dosage: 80 MG
     Route: 048
     Dates: start: 2000
  8. AMLODIPINE [Concomitant]
     Active Substance: AMLODIPINE BESYLATE
     Indication: HYPERTENSION
     Dosage: 5 MG
     Route: 048
     Dates: start: 1980

REACTIONS (2)
  - Rash [Recovered/Resolved]
  - Cellulitis [Recovered/Resolved]

NARRATIVE: CASE EVENT DATE: 20140308
